FAERS Safety Report 8379919-5 (Version None)
Quarter: 2012Q2

REPORT INFORMATION
  Report Type: 
  Country: None (occurrence: None)
  Receive Date: 20120523
  Receipt Date: 20120518
  Transmission Date: 20120825
  Serious: Yes (Other)
  Sender: FDA-Public Use
  Company Number: US-PFIZER INC-2012123538

PATIENT
  Sex: Male

DRUGS (1)
  1. INLYTA [Suspect]
     Indication: RENAL CANCER
     Dosage: 5 MG, 2X/DAY (1 TABLET TWICE A DAY)
     Route: 048
     Dates: start: 20120402

REACTIONS (3)
  - DIARRHOEA [None]
  - STAPHYLOCOCCAL INFECTION [None]
  - NAUSEA [None]
